FAERS Safety Report 4892111-1 (Version None)
Quarter: 2006Q1

REPORT INFORMATION
  Report Type: 
  Country: None (occurrence: None)
  Receive Date: 20060123
  Receipt Date: 20060109
  Transmission Date: 20060701
  Serious: Yes (Other)
  Sender: FDA-Public Use
  Company Number: 230002L06CAN

PATIENT
  Age: 38 Year
  Sex: Female

DRUGS (3)
  1. REBIF [Suspect]
     Indication: RELAPSING-REMITTING MULTIPLE SCLEROSIS
     Dosage: 22 MCG, 3 IN 1 WEEKS,SUBCUTANEOUS
     Route: 058
     Dates: start: 19990401
  2. REPAGLINIDE [Concomitant]
  3. LEVOTHYROXINE /00068001/ [Concomitant]

REACTIONS (3)
  - BURSITIS [None]
  - DRUG INEFFECTIVE [None]
  - REFUSAL OF TREATMENT BY PATIENT [None]
